FAERS Safety Report 16193039 (Version 1)
Quarter: 2019Q2

REPORT INFORMATION
  Report Type: Report from Study
  Country: US (occurrence: US)
  Receive Date: 20190413
  Receipt Date: 20190413
  Transmission Date: 20190711
  Serious: No
  Sender: FDA-Public Use
  Company Number: PHEH2019US016071

PATIENT
  Sex: Male

DRUGS (3)
  1. COSENTYX [Suspect]
     Active Substance: SECUKINUMAB
     Dosage: 300 OT, UNK (4)
     Route: 065
     Dates: start: 20180328
  2. COSENTYX [Suspect]
     Active Substance: SECUKINUMAB
     Dosage: 300 OT, UNK (4)
     Route: 065
     Dates: start: 20180914
  3. COSENTYX [Suspect]
     Active Substance: SECUKINUMAB
     Indication: PSORIASIS
     Dosage: 300 OT, UNK (4)
     Route: 065
     Dates: start: 20180221

REACTIONS (2)
  - Hyperlipidaemia [Unknown]
  - Gamma-glutamyltransferase increased [Unknown]

NARRATIVE: CASE EVENT DATE: 201810
